FAERS Safety Report 18382526 (Version 1)
Quarter: 2020Q4

REPORT INFORMATION
  Report Type: Spontaneous
  Country: US (occurrence: US)
  Receive Date: 20201013
  Receipt Date: 20201013
  Transmission Date: 20210114
  Serious: Yes (Death)
  Sender: FDA-Public Use
  Company Number: None

PATIENT
  Age: 76 Year
  Sex: Male

DRUGS (1)
  1. NEORAL [Suspect]
     Active Substance: CYCLOSPORINE
     Dosage: ?          OTHER DOSE:25;?
     Route: 048
     Dates: start: 201601, end: 20200827

REACTIONS (1)
  - Death [None]

NARRATIVE: CASE EVENT DATE: 20200827
